FAERS Safety Report 25527521 (Version 1)
Quarter: 2025Q3

REPORT INFORMATION
  Report Type: Spontaneous
  Country: US (occurrence: US)
  Receive Date: 20250708
  Receipt Date: 20250708
  Transmission Date: 20251021
  Serious: Yes (Hospitalization)
  Sender: LUPIN
  Company Number: US-LUPIN PHARMACEUTICALS INC.-2025-05651

PATIENT
  Age: 20 Year
  Sex: Male

DRUGS (14)
  1. CLOBAZAM [Suspect]
     Active Substance: CLOBAZAM
     Indication: Epilepsy
     Route: 065
  2. LAMOTRIGINE [Suspect]
     Active Substance: LAMOTRIGINE
     Indication: Epilepsy
     Route: 065
  3. TOPIRAMATE [Suspect]
     Active Substance: TOPIRAMATE
     Indication: Epilepsy
     Route: 065
  4. CARBAMAZEPINE [Suspect]
     Active Substance: CARBAMAZEPINE
     Indication: Epilepsy
     Route: 065
  5. FELBAMATE [Suspect]
     Active Substance: FELBAMATE
     Indication: Epilepsy
     Route: 065
  6. FELBAMATE [Suspect]
     Active Substance: FELBAMATE
     Route: 065
  7. FELBAMATE [Suspect]
     Active Substance: FELBAMATE
     Route: 065
  8. FELBAMATE [Suspect]
     Active Substance: FELBAMATE
     Route: 065
  9. FELBAMATE [Suspect]
     Active Substance: FELBAMATE
     Dosage: 2.5 MILLIGRAM/KILOGRAM, Q30MN (OVER 2 HOURS ON DAY 1)
     Route: 065
  10. FELBAMATE [Suspect]
     Active Substance: FELBAMATE
     Route: 065
  11. FELBAMATE [Suspect]
     Active Substance: FELBAMATE
     Dosage: 4.2 MILLIGRAM/KILOGRAM TID, Q12H (4.2 MG/KG/DOSE, FOR TWO DOSES)
     Route: 065
  12. FELBAMATE [Suspect]
     Active Substance: FELBAMATE
     Dosage: 5.6 MILLIGRAM/KILOGRAM, Q12H (5.6 MG/KG/DOSE)
     Route: 065
  13. FELBAMATE [Suspect]
     Active Substance: FELBAMATE
     Dosage: 1.4 MILLIGRAM/KILOGRAM, Q12H
     Route: 065
  14. VALPROIC ACID [Suspect]
     Active Substance: VALPROIC ACID
     Indication: Epilepsy
     Route: 065

REACTIONS (2)
  - Dermatitis allergic [Recovered/Resolved]
  - Drug ineffective [Unknown]
